FAERS Safety Report 16757969 (Version 1)
Quarter: 2019Q3

REPORT INFORMATION
  Report Type: Spontaneous
  Country: AU (occurrence: AU)
  Receive Date: 20190830
  Receipt Date: 20190830
  Transmission Date: 20191005
  Serious: Yes (Death)
  Sender: FDA-Public Use
  Company Number: AU-SA-2019SA239579

PATIENT

DRUGS (1)
  1. IRBESARTAN. [Suspect]
     Active Substance: IRBESARTAN
     Dosage: UNK UNK, UNK
     Route: 065

REACTIONS (5)
  - Swelling [Fatal]
  - Dysphagia [Unknown]
  - Dysphonia [Fatal]
  - Dyspnoea [Fatal]
  - Oropharyngeal pain [Fatal]

NARRATIVE: CASE EVENT DATE: 20190417
